FAERS Safety Report 15404166 (Version 1)
Quarter: 2018Q3

REPORT INFORMATION
  Report Type: Spontaneous
  Country: BR (occurrence: BR)
  Receive Date: 20180919
  Receipt Date: 20180919
  Transmission Date: 20181010
  Serious: Yes (Other)
  Sender: FDA-Public Use
  Company Number: PHHY2013BR040252

PATIENT
  Age: 7 Year
  Sex: Female
  Weight: 30 kg

DRUGS (2)
  1. RITALINA [Suspect]
     Active Substance: METHYLPHENIDATE HYDROCHLORIDE
     Indication: PSYCHOMOTOR HYPERACTIVITY
     Dosage: 2 DF, QD (IN THE MORNING AND AT LUNCH)
     Route: 048
  2. RITALINA [Suspect]
     Active Substance: METHYLPHENIDATE HYDROCHLORIDE
     Dosage: 4 DF, QD (2 IN MORNING AND 2 IN AFTERNOON)
     Route: 048
     Dates: end: 20130416

REACTIONS (10)
  - Skin discolouration [Not Recovered/Not Resolved]
  - Scratch [Unknown]
  - Dysphagia [Not Recovered/Not Resolved]
  - Drug dependence [Unknown]
  - Motor dysfunction [Not Recovered/Not Resolved]
  - Dysstasia [Not Recovered/Not Resolved]
  - Wrong technique in product usage process [Unknown]
  - Psychomotor hyperactivity [Not Recovered/Not Resolved]
  - Fall [Not Recovered/Not Resolved]
  - Agitation [Not Recovered/Not Resolved]

NARRATIVE: CASE EVENT DATE: 20130417
